FAERS Safety Report 11222320 (Version 1)
Quarter: 2015Q2

REPORT INFORMATION
  Report Type: Spontaneous
  Country: US (occurrence: US)
  Receive Date: 20150626
  Receipt Date: 20150626
  Transmission Date: 20150821
  Serious: Yes (Hospitalization, Other)
  Sender: FDA-Public Use
  Company Number: US-ARIAD PHARMACEUTICALS, INC-2015US004714

PATIENT

DRUGS (3)
  1. ICLUSIG [Suspect]
     Active Substance: PONATINIB
     Dosage: 15 MG, QD
     Route: 048
  2. BACTRIM [Suspect]
     Active Substance: SULFAMETHOXAZOLE\TRIMETHOPRIM
     Indication: PRODUCT USED FOR UNKNOWN INDICATION
  3. ICLUSIG [Suspect]
     Active Substance: PONATINIB
     Indication: ACUTE MYELOID LEUKAEMIA
     Dosage: 45 MG, QD
     Route: 048
     Dates: start: 20140925

REACTIONS (11)
  - Intestinal obstruction [Unknown]
  - Renal failure [Recovered/Resolved]
  - Unevaluable event [Unknown]
  - Constipation [Unknown]
  - Tachycardia [Unknown]
  - Gastrointestinal haemorrhage [Unknown]
  - Pleural effusion [Unknown]
  - Alopecia [Unknown]
  - Cytopenia [Unknown]
  - Pneumonia [Unknown]
  - Hypertension [Unknown]

NARRATIVE: CASE EVENT DATE: 20150126
